FAERS Safety Report 18417788 (Version 1)
Quarter: 2020Q4

REPORT INFORMATION
  Report Type: Spontaneous
  Country: IT (occurrence: IT)
  Receive Date: 20201023
  Receipt Date: 20201023
  Transmission Date: 20210114
  Serious: Yes (Death, Other)
  Sender: FDA-Public Use
  Company Number: IT-SUN PHARMACEUTICAL INDUSTRIES LTD-2020R1-264881

PATIENT
  Age: 51 Year
  Sex: Male

DRUGS (9)
  1. TRASTUZUMAB. [Suspect]
     Active Substance: TRASTUZUMAB
     Indication: METASTASES TO LIVER
     Dosage: 4 MILLIGRAM/KILOGRAM (LOADING DOSE)
     Route: 065
  2. PACLITAXEL. [Suspect]
     Active Substance: PACLITAXEL
     Indication: METASTASES TO LIVER
     Dosage: 80 MG PER M SQ., WEEKLY  2 CYCLES
     Route: 065
  3. CARBOPLATIN. [Suspect]
     Active Substance: CARBOPLATIN
     Indication: METASTASES TO LIVER
  4. TRASTUZUMAB. [Suspect]
     Active Substance: TRASTUZUMAB
     Indication: METASTASES TO BONE
     Dosage: 2 MILLIGRAM/KILOGRAM 2 CYCLES
     Route: 065
  5. CARBOPLATIN. [Suspect]
     Active Substance: CARBOPLATIN
     Indication: METASTASES TO BONE
     Dosage: UNK, WEEKLY (AUC2),  2 CYCLES
     Route: 065
  6. CARBOPLATIN. [Suspect]
     Active Substance: CARBOPLATIN
     Indication: SALIVARY GLAND CANCER
  7. PACLITAXEL. [Suspect]
     Active Substance: PACLITAXEL
     Indication: METASTASES TO BONE
  8. PACLITAXEL. [Suspect]
     Active Substance: PACLITAXEL
     Indication: SALIVARY GLAND CANCER
  9. TRASTUZUMAB. [Suspect]
     Active Substance: TRASTUZUMAB
     Indication: SALIVARY GLAND CANCER
     Dosage: 6 MILLIGRAM/KILOGRAM 3 WEEKLY
     Route: 065

REACTIONS (1)
  - Febrile neutropenia [Unknown]
